FAERS Safety Report 8314181-0 (Version None)
Quarter: 2012Q2

REPORT INFORMATION
  Report Type: 
  Country: None (occurrence: None)
  Receive Date: 20120426
  Receipt Date: 20120418
  Transmission Date: 20120825
  Serious: Yes (Other)
  Sender: FDA-Public Use
  Company Number: PHHY2010CA79489

PATIENT
  Sex: Male

DRUGS (10)
  1. AFINITOR [Suspect]
     Dosage: 10 MG, DAILY
     Route: 048
     Dates: end: 20110613
  2. AFINITOR [Suspect]
     Indication: PANCREATIC NEUROENDOCRINE TUMOUR
     Dosage: 10 MG, DAILY
     Route: 048
     Dates: start: 20101109
  3. SUTENT [Concomitant]
  4. MORPHINE SULFATE [Concomitant]
     Dosage: 3 MG, TID
  5. AFINITOR [Suspect]
     Dosage: 5 MG, DAILY
     Route: 048
     Dates: end: 20110124
  6. RED BLOOD CELLS [Concomitant]
     Dosage: 2 U, UNK
     Dates: start: 20120210
  7. SANDOSTATIN LAR [Suspect]
     Indication: PANCREATIC NEUROENDOCRINE TUMOUR
     Dosage: 30 MG, EVERY 4 WEEKS
     Route: 030
     Dates: start: 20090420
  8. SANDOSTATIN LAR [Suspect]
     Dosage: 30 MG, EVERY 4 WEEKS
     Route: 030
  9. RABEPRAZOLE SODIUM [Concomitant]
  10. DILTIAZEM HCL [Concomitant]

REACTIONS (23)
  - ORAL PAIN [None]
  - MUCOSAL INFLAMMATION [None]
  - ARTHRALGIA [None]
  - NEOPLASM MALIGNANT [None]
  - BACK PAIN [None]
  - MUSCULOSKELETAL CHEST PAIN [None]
  - FATIGUE [None]
  - BLOOD GLUCOSE INCREASED [None]
  - MOUTH ULCERATION [None]
  - TONGUE ULCERATION [None]
  - PAIN [None]
  - WEIGHT DECREASED [None]
  - CONTUSION [None]
  - DYSPEPSIA [None]
  - HAEMOGLOBIN DECREASED [None]
  - DRUG INEFFECTIVE [None]
  - GAIT DISTURBANCE [None]
  - NEOPLASM PROGRESSION [None]
  - PNEUMONIA [None]
  - ANAEMIA [None]
  - LYMPHADENOPATHY [None]
  - PYREXIA [None]
  - FALL [None]
